FAERS Safety Report 11089639 (Version 1)
Quarter: 2015Q2

REPORT INFORMATION
  Report Type: Spontaneous
  Country: US (occurrence: US)
  Receive Date: 20150505
  Receipt Date: 20150505
  Transmission Date: 20150821
  Serious: No
  Sender: FDA-Public Use
  Company Number: US-BIOGENIDEC-2015BI057286

PATIENT
  Age: 51 Year
  Sex: Female

DRUGS (31)
  1. TECFIDERA [Suspect]
     Active Substance: DIMETHYL FUMARATE
     Indication: MULTIPLE SCLEROSIS
     Route: 048
  2. FIORICET [Concomitant]
     Active Substance: ACETAMINOPHEN\BUTALBITAL\CAFFEINE
  3. PROAIR HFA [Concomitant]
     Active Substance: ALBUTEROL SULFATE
  4. QUESTRAN [Concomitant]
     Active Substance: CHOLESTYRAMINE
  5. FLONASE [Concomitant]
     Active Substance: FLUTICASONE PROPIONATE
  6. MOBIC [Concomitant]
     Active Substance: MELOXICAM
  7. NORCO [Concomitant]
     Active Substance: ACETAMINOPHEN\HYDROCODONE BITARTRATE
  8. TRAMADOL HCL [Concomitant]
     Active Substance: TRAMADOL HYDROCHLORIDE
  9. KLONOPIN [Concomitant]
     Active Substance: CLONAZEPAM
  10. SYNTHROID [Concomitant]
     Active Substance: LEVOTHYROXINE SODIUM
  11. TEGRETOL [Concomitant]
     Active Substance: CARBAMAZEPINE
  12. ABILIFY [Concomitant]
     Active Substance: ARIPIPRAZOLE
  13. ARICEPT ODT [Concomitant]
     Active Substance: DONEPEZIL HYDROCHLORIDE
  14. LOCOID [Concomitant]
     Active Substance: HYDROCORTISONE BUTYRATE
  15. MUCINEX DM MAX MAXIMUM STRENGTH [Concomitant]
     Active Substance: DEXTROMETHORPHAN HYDROBROMIDE\GUAIFENESIN
  16. ALIGN [Concomitant]
     Active Substance: BIFIDOBACTERIUM LONGUM SUBSP. INFANTIS
  17. HYLATOPIC PLUS [Concomitant]
  18. MIRALAX [Concomitant]
     Active Substance: POLYETHYLENE GLYCOL 3350
  19. NAMENDA XR [Concomitant]
     Active Substance: MEMANTINE HYDROCHLORIDE
  20. ADVAIR DISKUS [Concomitant]
     Active Substance: FLUTICASONE PROPIONATE\SALMETEROL XINAFOATE
  21. MUCINEX DM [Concomitant]
     Active Substance: DEXTROMETHORPHAN HYDROBROMIDE\GUAIFENESIN
  22. POTASSIUM CHLORIDE CRYS ER [Concomitant]
  23. PROVENTIL HFA [Concomitant]
     Active Substance: ALBUTEROL SULFATE
  24. VOLTAREN [Concomitant]
     Active Substance: DICLOFENAC SODIUM
  25. ZANTAC [Concomitant]
     Active Substance: RANITIDINE HYDROCHLORIDE
  26. PRILOSEC [Concomitant]
     Active Substance: OMEPRAZOLE MAGNESIUM
  27. ZOCOR [Concomitant]
     Active Substance: SIMVASTATIN
  28. ZOLOFT [Concomitant]
     Active Substance: SERTRALINE HYDROCHLORIDE
  29. ZYRTEC ALLERGY [Concomitant]
  30. PROVIGIL [Concomitant]
     Active Substance: MODAFINIL
  31. SOMA [Concomitant]
     Active Substance: CARISOPRODOL

REACTIONS (1)
  - Sinusitis [Unknown]
